FAERS Safety Report 5546949-8 (Version None)
Quarter: 2007Q4

REPORT INFORMATION
  Report Type: 
  Country: None (occurrence: None)
  Receive Date: 20071211
  Receipt Date: 20071207
  Transmission Date: 20080405
  Serious: Yes (Life-Threatening)
  Sender: FDA-Public Use
  Company Number: NO-ASTRAZENECA-2007SE06516

PATIENT
  Age: 19334 Day
  Sex: Female

DRUGS (3)
  1. PROPOFOL [Suspect]
     Indication: ANAESTHESIA
     Route: 042
     Dates: start: 20071120, end: 20071120
  2. REMIFENTANIL [Suspect]
     Indication: ANAESTHESIA
     Route: 042
     Dates: start: 20071120, end: 20071120
  3. SUXAMETHONIUM [Suspect]
     Indication: ANAESTHESIA
     Route: 042
     Dates: start: 20071120, end: 20071120

REACTIONS (2)
  - BRONCHOSPASM [None]
  - CIRCULATORY COLLAPSE [None]
